FAERS Safety Report 5265144-3 (Version None)
Quarter: 2007Q1

REPORT INFORMATION
  Report Type: 
  Country: None (occurrence: None)
  Receive Date: 20061121
  Receipt Date: 20061003
  Transmission Date: 20070707
  Serious: No
  Sender: FDA-Public Use
  Company Number: TPA2006A01721

PATIENT
  Age: 44 Year
  Sex: Female
  Weight: 72.5755 kg

DRUGS (6)
  1. ROZEREM [Suspect]
     Indication: INSOMNIA
     Dosage: SEE IMAGE
     Route: 048
     Dates: start: 20060823, end: 20060830
  2. ROZEREM [Suspect]
     Indication: INSOMNIA
     Dosage: SEE IMAGE
     Route: 048
     Dates: start: 20061001
  3. TOPROL-XL [Concomitant]
  4. KLONOPIN (CLONAZEPAM) (1 MILLIGRAM, TABLETS) [Concomitant]
  5. LASIX [Concomitant]
  6. AMBIEN CR (ZOLPIDEM TARTRATE) [Concomitant]

REACTIONS (1)
  - INITIAL INSOMNIA [None]
